FAERS Safety Report 4698957-7 (Version None)
Quarter: 2005Q2

REPORT INFORMATION
  Report Type: 
  Country: None (occurrence: None)
  Receive Date: 20050623
  Receipt Date: 20050623
  Transmission Date: 20051028
  Serious: Yes (Other)
  Sender: FDA-Public Use
  Company Number: None

PATIENT
  Age: 70 Year
  Sex: Female

DRUGS (4)
  1. GABAPENTIN [Suspect]
     Indication: NEUROPATHY
     Dosage: 300MG  TID  PO
     Route: 048
     Dates: start: 20040921, end: 20041227
  2. GABAPENTIN [Suspect]
     Indication: PHANTOM PAIN
     Dosage: 300MG  TID  PO
     Route: 048
     Dates: start: 20040921, end: 20041227
  3. GABAPENTIN [Suspect]
     Indication: NEUROPATHY
     Dosage: 300MG  TID  PO
     Route: 048
     Dates: start: 20041227, end: 20050201
  4. GABAPENTIN [Suspect]
     Indication: PHANTOM PAIN
     Dosage: 300MG  TID  PO
     Route: 048
     Dates: start: 20041227, end: 20050201

REACTIONS (1)
  - DRUG INEFFECTIVE [None]
